FAERS Safety Report 17031395 (Version 6)
Quarter: 2023Q1

REPORT INFORMATION
  Report Type: Spontaneous
  Country: US (occurrence: US)
  Receive Date: 20191114
  Receipt Date: 20230120
  Transmission Date: 20230417
  Serious: Yes (Other)
  Sender: FDA-Public Use
  Company Number: US-PFIZER INC-2019491007

PATIENT
  Age: 68 Year
  Sex: Male

DRUGS (1)
  1. XELJANZ [Suspect]
     Active Substance: TOFACITINIB CITRATE
     Dosage: 5 MG, 2X/DAY
     Route: 048
     Dates: start: 20191028

REACTIONS (9)
  - Sleep apnoea syndrome [Unknown]
  - Lung disorder [Unknown]
  - Skin disorder [Unknown]
  - Pain [Unknown]
  - Rash [Unknown]
  - Dizziness [Unknown]
  - Weight decreased [Unknown]
  - Vertigo [Unknown]
  - Blood pressure abnormal [Unknown]

NARRATIVE: CASE EVENT DATE: 20191111
